FAERS Safety Report 20523469 (Version 3)
Quarter: 2022Q3

REPORT INFORMATION
  Report Type: Report from Study
  Country: DK (occurrence: None)
  Receive Date: 20220228
  Receipt Date: 20220818
  Transmission Date: 20221027
  Serious: Yes (Hospitalization)
  Sender: FDA-Public Use
  Company Number: DK-ROCHE-3027677

PATIENT
  Age: 71 Year
  Sex: Male
  Weight: 89 kg

DRUGS (6)
  1. ATEZOLIZUMAB [Suspect]
     Active Substance: ATEZOLIZUMAB
     Indication: Bladder cancer
     Route: 041
     Dates: start: 20210326
  2. ATEZOLIZUMAB [Suspect]
     Active Substance: ATEZOLIZUMAB
     Dosage: MOST RECENT DOSE: 07/MAY/2021, 28/MAY/2021, 18/JUN/2021
     Route: 041
     Dates: start: 20210416
  3. ATEZOLIZUMAB [Suspect]
     Active Substance: ATEZOLIZUMAB
     Dosage: MOST RECENT DOSE: 06/AUG/2021,  27/AUG/2021
     Route: 041
     Dates: start: 20210709
  4. ATEZOLIZUMAB [Suspect]
     Active Substance: ATEZOLIZUMAB
     Dosage: MOST RECENT DOSE: 8/OCT/2021,  29/OCT/2021
     Route: 041
     Dates: start: 20210917
  5. ATEZOLIZUMAB [Suspect]
     Active Substance: ATEZOLIZUMAB
     Dosage: MOST RECENT DOSE:  27/DEC/2021,
     Route: 041
     Dates: start: 20211126
  6. ATEZOLIZUMAB [Suspect]
     Active Substance: ATEZOLIZUMAB
     Dosage: MOST RECENT DOSE:  04/FEB/2022
     Route: 041
     Dates: start: 20220114

REACTIONS (1)
  - Pyelonephritis [Recovered/Resolved]

NARRATIVE: CASE EVENT DATE: 20211215
